FAERS Safety Report 7490018-7 (Version None)
Quarter: 2011Q2

REPORT INFORMATION
  Report Type: 
  Country: None (occurrence: None)
  Receive Date: 20110512
  Receipt Date: 20110502
  Transmission Date: 20111010
  Serious: Yes (Death)
  Sender: FDA-Public Use
  Company Number: LEO-2011-00306

PATIENT
  Sex: Female
  Weight: 108 kg

DRUGS (3)
  1. INNOHEP [Suspect]
     Indication: DEEP VEIN THROMBOSIS
     Dosage: 18000 IU (18000 IU, 1 IN 1 D, SUBCUTANEOUS, 180000 IU (10000 IU, 1 IN 1 D), SUBCUTANEOUS
     Route: 058
     Dates: start: 20101201
  2. INNOHEP [Suspect]
     Indication: DEEP VEIN THROMBOSIS
     Dosage: 18000 IU (18000 IU, 1 IN 1 D, SUBCUTANEOUS, 180000 IU (10000 IU, 1 IN 1 D), SUBCUTANEOUS
     Route: 058
     Dates: start: 20110117
  3. HEPARIN [Concomitant]

REACTIONS (7)
  - DRUG EXPOSURE DURING PREGNANCY [None]
  - DILATATION VENTRICULAR [None]
  - CARDIAC DISORDER [None]
  - CARDIAC ARREST [None]
  - PULMONARY EMBOLISM [None]
  - OFF LABEL USE [None]
  - ACIDOSIS [None]
